FAERS Safety Report 4894867-0 (Version None)
Quarter: 2006Q1

REPORT INFORMATION
  Report Type: 
  Country: None (occurrence: None)
  Receive Date: 20060127
  Receipt Date: 20060127
  Transmission Date: 20060701
  Serious: Yes (Death, Hospitalization)
  Sender: FDA-Public Use
  Company Number: None

PATIENT
  Sex: Male
  Weight: 112 kg

DRUGS (4)
  1. DAUNORUBICIN [Suspect]
     Indication: ACUTE LYMPHOCYTIC LEUKAEMIA
     Dosage: SEE IMAGE
     Dates: start: 20060110
  2. DEXAMETHASONE TAB [Suspect]
     Dosage: SEE IMAGE
     Dates: start: 20060111
  3. ELSPAR [Suspect]
     Dosage: SEE IMAGE
     Dates: start: 20060111
  4. VINCRISTINE SULFATE [Suspect]
     Dosage: SEE IMAGE
     Dates: start: 20060111

REACTIONS (8)
  - ASTHENIA [None]
  - BLOOD CULTURE POSITIVE [None]
  - FEBRILE NEUTROPENIA [None]
  - LEUKOSTASIS [None]
  - SEPSIS [None]
  - SPUTUM CULTURE POSITIVE [None]
  - STAPHYLOCOCCAL INFECTION [None]
  - TRANSIENT ISCHAEMIC ATTACK [None]
